FAERS Safety Report 16885269 (Version 1)
Quarter: 2019Q4

REPORT INFORMATION
  Report Type: Other
  Country: BE (occurrence: BE)
  Receive Date: 20191004
  Receipt Date: 20191004
  Transmission Date: 20200122
  Serious: Yes (Other)
  Sender: FDA-Public Use
  Company Number: BE-APOTEX-2019AP022849

PATIENT
  Age: 57 Year
  Sex: Male

DRUGS (7)
  1. TRAMETINIB [Concomitant]
     Active Substance: TRAMETINIB
     Indication: ERDHEIM-CHESTER DISEASE
     Dosage: 2 MG, QD
     Route: 065
  2. MYCOPHENOLATE [Suspect]
     Active Substance: MYCOPHENOLIC ACID
     Indication: RETROPERITONEAL FIBROSIS
     Dosage: 3 MG, QD
     Route: 065
  3. DABRAFENIB [Concomitant]
     Active Substance: DABRAFENIB
     Dosage: 150 MG, QD (150 MG BID)
     Route: 065
  4. DABRAFENIB [Concomitant]
     Active Substance: DABRAFENIB
     Indication: ERDHEIM-CHESTER DISEASE
     Dosage: 150 MG, QD (75 MG, BID)
     Route: 065
  5. METHYLPREDNISOLONE. [Suspect]
     Active Substance: METHYLPREDNISOLONE
     Indication: RETROPERITONEAL FIBROSIS
     Dosage: UNK (METHYLPREDNISOLONE HAD BEEN INCREASED SHORTLY PRIOR TO THE PRESENTATION TO 32 MG/D DUE TO DISEA
     Route: 065
  6. DABRAFENIB [Concomitant]
     Active Substance: DABRAFENIB
     Dosage: 300 MG, QD
     Route: 065
  7. MYCOPHENOLATE [Suspect]
     Active Substance: MYCOPHENOLIC ACID
     Dosage: 1.5 MG, QD
     Route: 065

REACTIONS (3)
  - Arthralgia [Unknown]
  - Product use in unapproved indication [Unknown]
  - Staphylococcal bacteraemia [Unknown]
